FAERS Safety Report 4606464-2 (Version None)
Quarter: 2005Q1

REPORT INFORMATION
  Report Type: 
  Country: None (occurrence: None)
  Receive Date: 20050311
  Receipt Date: 20050304
  Transmission Date: 20050727
  Serious: Yes (Life-Threatening, Hospitalization, Disabling)
  Sender: FDA-Public Use
  Company Number: US-MERCK-0503USA00748

PATIENT
  Age: 69 Year
  Sex: Female

DRUGS (5)
  1. VIOXX [Suspect]
     Indication: HIP FRACTURE
     Route: 048
     Dates: start: 20020101, end: 20040930
  2. OXYCONTIN [Concomitant]
     Route: 065
  3. PREVACID [Concomitant]
     Route: 065
  4. ISORBID [Concomitant]
     Route: 065
  5. CARDIZEM [Concomitant]
     Route: 065

REACTIONS (2)
  - CARDIAC FAILURE CONGESTIVE [None]
  - HEART RATE DECREASED [None]
